FAERS Safety Report 24785456 (Version 1)
Quarter: 2024Q4

REPORT INFORMATION
  Report Type: Spontaneous
  Country: US (occurrence: US)
  Receive Date: 20241228
  Receipt Date: 20241228
  Transmission Date: 20250115
  Serious: Yes (Life-Threatening, Hospitalization, Other)
  Sender: AMGEN
  Company Number: US-AMGEN-USASP2024252002

PATIENT
  Age: 72 Year
  Sex: Male

DRUGS (1)
  1. BEVACIZUMAB [Suspect]
     Active Substance: BEVACIZUMAB
     Indication: Age-related macular degeneration
     Dosage: MONTHLY

REACTIONS (7)
  - Presyncope [Unknown]
  - Epistaxis [Recovered/Resolved]
  - Hypovolaemia [Unknown]
  - Orthostatic hypotension [Unknown]
  - Hyperaemia [Unknown]
  - Injection site telangiectasia [Recovered/Resolved]
  - Off label use [Unknown]
